FAERS Safety Report 9540518 (Version 1)
Quarter: 2013Q3

REPORT INFORMATION
  Report Type: Spontaneous
  Country: GB (occurrence: GB)
  Receive Date: 20130920
  Receipt Date: 20130920
  Transmission Date: 20140515
  Serious: Yes (Other)
  Sender: FDA-Public Use
  Company Number: GB-PFIZER INC-2013270046

PATIENT
  Age: 22 Year
  Sex: Male
  Weight: 70 kg

DRUGS (7)
  1. DICLOFENAC [Suspect]
     Dosage: UNK WHEN NECESSARY
     Route: 048
  2. DICLOFENAC [Suspect]
     Dosage: 50 MG, 3X/DAY
     Route: 048
     Dates: start: 20130719, end: 20130722
  3. LAMOTRIGINE [Concomitant]
     Dosage: 475 MG, 1X/DAY
     Route: 048
  4. CLOBAZAM [Concomitant]
     Dosage: 10 MG, UNK
     Route: 048
  5. MULTIVITAMINS [Concomitant]
     Dosage: UNK
     Route: 048
  6. GAVISCON [Concomitant]
     Dosage: UNK
  7. SENOKOT [Concomitant]
     Dosage: UNK

REACTIONS (2)
  - Convulsion [Recovered/Resolved]
  - Condition aggravated [Recovered/Resolved]
